FAERS Safety Report 18669409 (Version 2)
Quarter: 2021Q1

REPORT INFORMATION
  Report Type: Spontaneous
  Country: PL (occurrence: PL)
  Receive Date: 20201228
  Receipt Date: 20210114
  Transmission Date: 20210419
  Serious: Yes (Hospitalization, Other)
  Sender: FDA-Public Use
  Company Number: PL-TEVA-2020-PL-1861627

PATIENT
  Age: 42 Year
  Sex: Male

DRUGS (8)
  1. FENTANYL. [Suspect]
     Active Substance: FENTANYL
     Route: 065
  2. GABAPENTIN. [Suspect]
     Active Substance: GABAPENTIN
     Dosage: 900 MILLIGRAM DAILY;
     Route: 065
  3. OXYCODONE [Suspect]
     Active Substance: OXYCODONE
     Dosage: 240 MILLIGRAM DAILY; CONTROLLED?RELEASE TABLETS
     Route: 065
  4. FENTANYL. [Suspect]
     Active Substance: FENTANYL
     Indication: PAIN
     Dosage: ADM MORE THAN 4 TIMES PER DAY DUE TO THE FREQUENT EXCEEDING OF FOUR ADMINISTRATIONS A DAY
     Route: 002
  5. METAMIZOLE [Suspect]
     Active Substance: METAMIZOLE
     Route: 065
  6. PARACETAMOL [Suspect]
     Active Substance: ACETAMINOPHEN
     Route: 065
  7. TRAMADOL. [Suspect]
     Active Substance: TRAMADOL
     Route: 065
  8. MORPHINE [Suspect]
     Active Substance: MORPHINE
     Route: 065

REACTIONS (6)
  - Gingival pain [Unknown]
  - Therapeutic product effect incomplete [Unknown]
  - Constipation [Unknown]
  - Drug dependence [Recovered/Resolved]
  - Toothache [Unknown]
  - Anaphylactic shock [Unknown]
